FAERS Safety Report 9349377 (Version 1)
Quarter: 2013Q2

REPORT INFORMATION
  Report Type: Report from Study
  Country: JP (occurrence: JP)
  Receive Date: 20130614
  Receipt Date: 20130614
  Transmission Date: 20140414
  Serious: Yes (Life-Threatening, Hospitalization)
  Sender: FDA-Public Use
  Company Number: JP-ACTELION-A-CH2011-46887

PATIENT
  Age: 3 Month
  Sex: Female
  Weight: 3 kg

DRUGS (7)
  1. TRACLEER [Suspect]
     Indication: PULMONARY ARTERIAL HYPERTENSION
     Dosage: 2.5 MG, BID
     Route: 048
     Dates: start: 20100130, end: 20100202
  2. ASPIRIN [Suspect]
     Dosage: 15 MG, UNK
     Route: 048
     Dates: start: 20100124, end: 20100629
  3. SILDENAFIL CITRATE [Concomitant]
  4. FUROSEMIDE [Concomitant]
  5. SPIRONOLACTONE [Concomitant]
  6. CARBOCISTEINE [Concomitant]
  7. AMBROXOL HYDROCHLORIDE [Concomitant]

REACTIONS (3)
  - Hepatic function abnormal [Recovered/Resolved]
  - Alanine aminotransferase increased [Recovered/Resolved]
  - Aspartate aminotransferase increased [Recovered/Resolved]
